FAERS Safety Report 19608075 (Version 1)
Quarter: 2021Q3

REPORT INFORMATION
  Report Type: Spontaneous
  Country: US (occurrence: US)
  Receive Date: 20210721
  Receipt Date: 20210721
  Transmission Date: 20211014
  Serious: Yes (Life-Threatening, Other)
  Sender: FDA-Public Use
  Company Number: None

PATIENT
  Age: 34 Year
  Sex: Male

DRUGS (40)
  1. AMLODIPINE [Concomitant]
     Active Substance: AMLODIPINE BESYLATE
  2. ARIPRAZOLE [Concomitant]
     Active Substance: ARIPIPRAZOLE
  3. ATORVASTATIN [Concomitant]
     Active Substance: ATORVASTATIN
  4. CLARITIN [Concomitant]
     Active Substance: LORATADINE
  5. HYDROCORTISONE. [Concomitant]
     Active Substance: HYDROCORTISONE
  6. HYDROXYZINE [Concomitant]
     Active Substance: HYDROXYZINE HYDROCHLORIDE
  7. PANTOPRAZOLE [Concomitant]
     Active Substance: PANTOPRAZOLE
  8. CLOTRIMAZOLE. [Concomitant]
     Active Substance: CLOTRIMAZOLE
  9. RISPERIDONE 2MG TABLET [Suspect]
     Active Substance: RISPERIDONE
     Indication: SCHIZOPHRENIA
     Dosage: ?          QUANTITY:1 DF DOSAGE FORM;?
     Route: 048
     Dates: start: 2005, end: 2021
  10. JARDIANCE [Concomitant]
     Active Substance: EMPAGLIFLOZIN
  11. NORTRIPTYLINE [Concomitant]
     Active Substance: NORTRIPTYLINE
  12. GABAPENTIN. [Concomitant]
     Active Substance: GABAPENTIN
  13. BACLOFEN. [Concomitant]
     Active Substance: BACLOFEN
  14. BREO ELLIPTA [Concomitant]
     Active Substance: FLUTICASONE FUROATE\VILANTEROL TRIFENATATE
  15. CYCLOBENZAPRINE. [Concomitant]
     Active Substance: CYCLOBENZAPRINE
  16. ENTRESTO [Concomitant]
     Active Substance: SACUBITRIL\VALSARTAN
  17. LIDOCAINE. [Concomitant]
     Active Substance: LIDOCAINE
  18. LORATADINE. [Concomitant]
     Active Substance: LORATADINE
  19. SPIRONOLACTONE. [Concomitant]
     Active Substance: SPIRONOLACTONE
  20. TAMSULOSIN [Concomitant]
     Active Substance: TAMSULOSIN
  21. VENTOLIN [Concomitant]
     Active Substance: ALBUTEROL SULFATE
  22. PERIDEX [Concomitant]
     Active Substance: CHLORHEXIDINE GLUCONATE
  23. ZANTAC [Suspect]
     Active Substance: RANITIDINE HYDROCHLORIDE
     Indication: DYSPEPSIA
  24. CARVEDILOL. [Concomitant]
     Active Substance: CARVEDILOL
  25. JANUMET [Concomitant]
     Active Substance: METFORMIN HYDROCHLORIDE\SITAGLIPTIN PHOSPHATE
  26. DICLOFENAC [Concomitant]
     Active Substance: DICLOFENAC
  27. NYSTATIN. [Concomitant]
     Active Substance: NYSTATIN
  28. MONTELUKAST [Concomitant]
     Active Substance: MONTELUKAST SODIUM
  29. MUPIROCIN. [Concomitant]
     Active Substance: MUPIROCIN
  30. LIPITOR [Concomitant]
     Active Substance: ATORVASTATIN CALCIUM
  31. ZANTAC [Suspect]
     Active Substance: RANITIDINE HYDROCHLORIDE
     Indication: FLATULENCE
     Dosage: ?          QUANTITY:1 DF DOSAGE FORM;?
     Route: 048
  32. RIZATRIPTAN. [Concomitant]
     Active Substance: RIZATRIPTAN
  33. BACTRIMINS [Concomitant]
  34. RISPERIDONE 2MG TABLET [Suspect]
     Active Substance: RISPERIDONE
     Indication: BIPOLAR DISORDER
  35. FLONASE [Concomitant]
     Active Substance: FLUTICASONE PROPIONATE
  36. OINTMENTS [Concomitant]
  37. QUETIAPINE. [Concomitant]
     Active Substance: QUETIAPINE
  38. ALBUTEROL. [Concomitant]
     Active Substance: ALBUTEROL
  39. NAPROXEN. [Concomitant]
     Active Substance: NAPROXEN
  40. VOLTAREN [Concomitant]
     Active Substance: DICLOFENAC SODIUM

REACTIONS (5)
  - Cardiac disorder [None]
  - Spinal disorder [None]
  - Palpitations [None]
  - Renal disorder [None]
  - Swelling [None]

NARRATIVE: CASE EVENT DATE: 20070725
